FAERS Safety Report 9620027 (Version 1)
Quarter: 2013Q4

REPORT INFORMATION
  Report Type: Spontaneous
  Country: US (occurrence: US)
  Receive Date: 20131014
  Receipt Date: 20131014
  Transmission Date: 20140711
  Serious: Yes (Death, Other)
  Sender: FDA-Public Use
  Company Number: US-MPIJNJ-2013MPI000609

PATIENT
  Age: 68 Year
  Sex: Female

DRUGS (7)
  1. VELCADE [Suspect]
     Indication: AMYLOIDOSIS
     Dosage: 1.3 MG/M2, 1/WEEK
     Route: 058
  2. DEXAMETHASONE [Suspect]
     Indication: AMYLOIDOSIS
     Dosage: 40 MG, 1/WEEK
     Route: 048
  3. LENALIDOMIDE [Suspect]
     Indication: AMYLOIDOSIS
     Dosage: 15 MG, UNK
  4. BASILIXIMAB [Concomitant]
     Indication: IMMUNOSUPPRESSION
     Dosage: 20 MG, UNK
  5. TACROLIMUS [Concomitant]
     Indication: IMMUNOSUPPRESSION
  6. PREDNISONE [Concomitant]
  7. ASPIRIN [Concomitant]
     Dosage: 81 MG, QD

REACTIONS (2)
  - Multiple organ transplant rejection [Fatal]
  - Off label use [Unknown]
